FAERS Safety Report 9371535 (Version 1)
Quarter: 2013Q2

REPORT INFORMATION
  Report Type: Spontaneous
  Country: US (occurrence: None)
  Receive Date: 20130626
  Receipt Date: 20130626
  Transmission Date: 20140414
  Serious: Yes (Other)
  Sender: FDA-Public Use
  Company Number: None

PATIENT
  Age: 82 Year
  Sex: Female
  Weight: 91.17 kg

DRUGS (1)
  1. ELOQUIS-APIXABAN [Suspect]
     Indication: ATRIAL FIBRILLATION
     Dosage: 5 MG BID PO?ABOUT THREE MONTHS
     Route: 048
     Dates: start: 20130401, end: 20130630

REACTIONS (1)
  - Urticaria [None]
